FAERS Safety Report 19948540 (Version 2)
Quarter: 2021Q4

REPORT INFORMATION
  Report Type: Spontaneous
  Country: US (occurrence: US)
  Receive Date: 20211013
  Receipt Date: 20211122
  Transmission Date: 20220303
  Serious: Yes (Other)
  Sender: FDA-Public Use
  Company Number: US-BLUEPRINT MEDICINES CORPORATION-SP-US-2021-001789

PATIENT
  Age: 60 Year
  Sex: Male

DRUGS (1)
  1. AYVAKIT [Suspect]
     Active Substance: AVAPRITINIB
     Indication: Gastrointestinal stromal tumour
     Dosage: TAKE 1 TAB DAILY X 9 DAYS THEN OFF 3 DAYS REPEAT CYCLE
     Route: 048
     Dates: start: 20160801

REACTIONS (10)
  - Hallucination [Not Recovered/Not Resolved]
  - Paranoia [Not Recovered/Not Resolved]
  - Pain [Not Recovered/Not Resolved]
  - Dysphagia [Not Recovered/Not Resolved]
  - Pain in extremity [Not Recovered/Not Resolved]
  - Diarrhoea [Not Recovered/Not Resolved]
  - Memory impairment [Not Recovered/Not Resolved]
  - Dyspnoea [Not Recovered/Not Resolved]
  - Abdominal pain [Not Recovered/Not Resolved]
  - Off label use [Unknown]

NARRATIVE: CASE EVENT DATE: 20160801
